FAERS Safety Report 10219718 (Version 1)
Quarter: 2014Q2

REPORT INFORMATION
  Report Type: Report from Study
  Country: DE (occurrence: DE)
  Receive Date: 20140605
  Receipt Date: 20140605
  Transmission Date: 20141212
  Serious: Yes (Hospitalization)
  Sender: FDA-Public Use
  Company Number: DE-ABBVIE-14P-062-1243301-00

PATIENT
  Age: 53 Year
  Sex: Female
  Weight: 100 kg

DRUGS (1)
  1. HUMIRA [Suspect]
     Indication: CROHN^S DISEASE
     Route: 058
     Dates: start: 20121115

REACTIONS (5)
  - Subileus [Recovered/Resolved]
  - Abdominal pain [Unknown]
  - Vomiting [Recovering/Resolving]
  - Nausea [Unknown]
  - Anaemia [Unknown]
